FAERS Safety Report 15979113 (Version 1)
Quarter: 2019Q1

REPORT INFORMATION
  Report Type: Spontaneous
  Country: US (occurrence: US)
  Receive Date: 20190124
  Receipt Date: 20190124
  Transmission Date: 20190418
  Serious: No
  Sender: FDA-Public Use
  Company Number: None

PATIENT
  Age: 61 Year
  Sex: Female

DRUGS (1)
  1. FONDAPARINUX 7.5MG/0.6ML PFS [Suspect]
     Active Substance: FONDAPARINUX
     Route: 058
     Dates: start: 201901

REACTIONS (1)
  - Off label use [None]

NARRATIVE: CASE EVENT DATE: 20190124
